FAERS Safety Report 8949493 (Version 1)
Quarter: 2012Q4

REPORT INFORMATION
  Report Type: 
  Country: US (occurrence: US)
  Receive Date: 20121206
  Receipt Date: 20121206
  Transmission Date: 20130627
  Serious: Yes (Other)
  Sender: FDA-Public Use
  Company Number: PHEH2012US023834

PATIENT
  Sex: Female
  Weight: 68.27 kg

DRUGS (2)
  1. LOTREL [Suspect]
     Indication: HYPERTENSION
     Dosage: 10/40mg, QD
  2. PREMARIN [Concomitant]
     Dosage: 1.25 mg, daily
     Dates: start: 1977

REACTIONS (3)
  - Cystitis haemorrhagic [Unknown]
  - Otitis media [Unknown]
  - Upper respiratory tract infection [Recovering/Resolving]
